FAERS Safety Report 12751024 (Version 3)
Quarter: 2021Q2

REPORT INFORMATION
  Report Type: Spontaneous
  Country: JP (occurrence: JP)
  Receive Date: 20160915
  Receipt Date: 20210616
  Transmission Date: 20210716
  Serious: Yes (Death, Other)
  Sender: FDA-Public Use
  Company Number: PHJP2016JP026340

PATIENT
  Age: 1 Month
  Sex: Male
  Weight: 2.7 kg

DRUGS (1)
  1. AFINITOR [Suspect]
     Active Substance: EVEROLIMUS
     Indication: RHABDOMYOMA
     Dosage: 0.25 MG
     Route: 048
     Dates: start: 2014

REACTIONS (4)
  - Multiple organ dysfunction syndrome [Fatal]
  - Respiratory tract haemorrhage [Unknown]
  - Pulmonary hypertension [Unknown]
  - Product use issue [Unknown]
